FAERS Safety Report 12771401 (Version 1)
Quarter: 2016Q3

REPORT INFORMATION
  Report Type: Spontaneous
  Country: US (occurrence: US)
  Receive Date: 20160922
  Receipt Date: 20160922
  Transmission Date: 20161109
  Serious: No
  Sender: FDA-Public Use
  Company Number: US-AMGEN-USASP2015100188

PATIENT

DRUGS (8)
  1. CARBO                              /00740901/ [Concomitant]
     Dosage: UNK UNK, ONCE WEEKLY
  2. FOLINIC ACID [Concomitant]
     Active Substance: LEUCOVORIN
     Dosage: UNK UNK, ONCE WEEKLY
  3. OXALIPLATIN. [Concomitant]
     Active Substance: OXALIPLATIN
     Dosage: UNK UNK, ONCE WEEKLY
  4. TAXOL [Concomitant]
     Active Substance: PACLITAXEL
     Dosage: UNK UNK, ONCE WEEKLY
  5. FLUOROURACIL. [Concomitant]
     Active Substance: FLUOROURACIL
     Dosage: UNK UNK, ONCE WEEKLY
  6. ABRAXANE [Concomitant]
     Active Substance: PACLITAXEL
     Dosage: UNK UNK, ONCE WEEKLY
  7. GEMZAR [Concomitant]
     Active Substance: GEMCITABINE HYDROCHLORIDE
     Dosage: UNK UNK, ONCE WEEKLY
  8. NEUPOGEN [Suspect]
     Active Substance: FILGRASTIM
     Indication: PROPHYLAXIS
     Dosage: UNK UNK, 2-3 TIMES A WEEK
     Route: 065

REACTIONS (2)
  - Inappropriate schedule of drug administration [Unknown]
  - White blood cell count decreased [Unknown]
